FAERS Safety Report 22839800 (Version 3)
Quarter: 2023Q4

REPORT INFORMATION
  Report Type: Report from Study
  Country: US (occurrence: US)
  Receive Date: 20230818
  Receipt Date: 20231026
  Transmission Date: 20240109
  Serious: No
  Sender: FDA-Public Use
  Company Number: US-IDORSIA-006637-2023-US

PATIENT
  Age: 77 Year
  Sex: Male

DRUGS (2)
  1. QUVIVIQ [Suspect]
     Active Substance: DARIDOREXANT
     Indication: Insomnia
     Dosage: 25 MG, QD
     Route: 048
     Dates: start: 20230806, end: 20230808
  2. QUVIVIQ [Suspect]
     Active Substance: DARIDOREXANT
     Dosage: 12.5 MG (CUT 25MG TO HALF), QD
     Route: 048
     Dates: start: 202308, end: 20230813

REACTIONS (4)
  - Wrong technique in product usage process [Recovered/Resolved]
  - Intentional underdose [Unknown]
  - Somnolence [Recovered/Resolved]
  - Insomnia [Unknown]

NARRATIVE: CASE EVENT DATE: 20230801
